FAERS Safety Report 9322985 (Version 2)
Quarter: 2014Q1

REPORT INFORMATION
  Report Type: Spontaneous
  Country: US (occurrence: US)
  Receive Date: 20130603
  Receipt Date: 20140206
  Transmission Date: 20141002
  Serious: Yes (Hospitalization)
  Sender: FDA-Public Use
  Company Number: US-B.I. PHARMACEUTICALS,INC./RIDGEFIELD-2013-BI-14729BP

PATIENT
  Age: 80 Year
  Sex: Male
  Weight: 78.02 kg

DRUGS (11)
  1. PRADAXA [Suspect]
     Indication: PRODUCT USED FOR UNKNOWN INDICATION
     Dosage: 300 MG
     Route: 048
     Dates: start: 20110822, end: 20111201
  2. ASPIRIN [Concomitant]
     Dosage: 81 MG
     Route: 048
  3. COSOPT [Concomitant]
  4. EFFIENT [Concomitant]
     Dosage: 5 MG
     Route: 048
  5. LUMIGAN [Concomitant]
  6. TEGRETOL XR [Concomitant]
     Dosage: 400 MG
     Route: 048
  7. METFORMIN [Concomitant]
     Dosage: 500 MG
     Route: 048
  8. METHAZOLAMIDE [Concomitant]
     Dosage: 100 MG
     Route: 048
  9. MULTIVITAMIN [Concomitant]
     Route: 048
  10. NIACIN [Concomitant]
     Dosage: 1000 MG
     Route: 048
  11. ROSUVASTATIN [Concomitant]
     Dosage: 20 MG
     Route: 048

REACTIONS (5)
  - Upper gastrointestinal haemorrhage [Unknown]
  - Haemorrhagic anaemia [Unknown]
  - Syncope [Unknown]
  - Gastrooesophageal reflux disease [Unknown]
  - Nausea [Unknown]
